FAERS Safety Report 7905015-4 (Version None)
Quarter: 2011Q4

REPORT INFORMATION
  Report Type: 
  Country: None (occurrence: None)
  Receive Date: 20111109
  Receipt Date: 20111031
  Transmission Date: 20120403
  Serious: Yes (Hospitalization)
  Sender: FDA-Public Use
  Company Number: US-BAYER-201012542NA

PATIENT
  Age: 42 Year
  Sex: Female
  Weight: 59.864 kg

DRUGS (17)
  1. FLAGYL [Concomitant]
  2. YASMIN [Suspect]
     Indication: PREMENSTRUAL SYNDROME
     Dosage: 1 DF (DAILY DOSE), QD, ORAL
     Route: 048
     Dates: start: 20011201, end: 20030201
  3. PROPRANOLOL [Concomitant]
  4. METHIMAZOLE [Concomitant]
  5. PROZAC [Concomitant]
     Indication: PREMENSTRUAL SYNDROME
     Dosage: 20 MG, QD
     Dates: start: 20080901
  6. DIFLUCAN [Concomitant]
     Indication: URINARY TRACT INFECTION
  7. ASPIRIN [Concomitant]
     Dosage: 325 MG, QD
  8. INDERAL [Concomitant]
     Indication: MIGRAINE
     Dosage: 40 MG, BID
     Dates: start: 20090301, end: 20090601
  9. CEPHALEXIN [Concomitant]
     Indication: INFECTION
     Dosage: 500 MG, TID
     Dates: start: 20090510, end: 20090516
  10. FIORICET [Concomitant]
     Indication: MIGRAINE
     Dosage: UNK UNK, PRN
     Dates: start: 20090427
  11. BUTALBITAL [Concomitant]
     Indication: HEADACHE
     Dosage: UNK
     Dates: start: 20090502, end: 20090502
  12. LEVAQUIN [Concomitant]
     Indication: URINARY TRACT INFECTION
  13. AMBIEN CR [Concomitant]
     Indication: INSOMNIA
     Dosage: 10 MG, QD
     Dates: start: 20081201, end: 20100101
  14. YAZ [Suspect]
  15. TAPAZOLE [Concomitant]
     Indication: HYPERTHYROIDISM
     Dosage: UNK
     Dates: start: 20090201, end: 20090501
  16. YAZ [Suspect]
     Indication: PREMENSTRUAL SYNDROME
     Dosage: 1 DF (DAILY DOSE), QD, ORAL
     Route: 048
     Dates: start: 20071001, end: 20090501
  17. ACETAMINOPHEN AND HYDROCODONE BITARTRATE [Concomitant]

REACTIONS (7)
  - QUALITY OF LIFE DECREASED [None]
  - ANXIETY [None]
  - DEPRESSION [None]
  - DEEP VEIN THROMBOSIS [None]
  - EMOTIONAL DISTRESS [None]
  - ADJUSTMENT DISORDER [None]
  - CEREBROVASCULAR ACCIDENT [None]
